FAERS Safety Report 6543946-0 (Version None)
Quarter: 2010Q1

REPORT INFORMATION
  Report Type: 
  Country: None (occurrence: None)
  Receive Date: 20100120
  Receipt Date: 20100111
  Transmission Date: 20100710
  Serious: Yes (Other)
  Sender: FDA-Public Use
  Company Number: GB-ELI_LILLY_AND_COMPANY-GB200912003302

PATIENT
  Age: 55 Year
  Sex: Male

DRUGS (13)
  1. SOMATROPIN [Suspect]
     Dosage: 10 MG, WEEKLY (1/W)
     Route: 065
  2. TESTOSTERONE [Suspect]
     Dates: start: 20071001
  3. ATORVASTATIN CALCIUM [Concomitant]
     Dosage: 80 MG, UNK
  4. CLOPIDOGREL [Concomitant]
     Dosage: 75 MG, UNK
  5. FENOFIBRATE [Concomitant]
     Dosage: 160 MG, UNK
  6. METFORMIN [Concomitant]
     Dosage: 3000 MG, UNK
  7. MOVELAT /01178201/ [Concomitant]
  8. NOVOMIX /01475801/ [Concomitant]
     Dosage: 136 IU, UNK
  9. ROSIGLITAZONE MALEATE [Concomitant]
     Dosage: 4 MG, UNK
  10. ALBUTEROL [Concomitant]
     Dosage: 800 UG, UNKNOWN
     Route: 055
  11. SERETIDE [Concomitant]
     Route: 055
  12. VALSARTAN [Concomitant]
     Dosage: 80 MG, UNK
  13. VARDENAFIL [Concomitant]
     Dosage: 20 MG, OTHER (TWO WEEKS)

REACTIONS (4)
  - BLOOD PRESSURE INCREASED [None]
  - BURNING SENSATION [None]
  - DYSGEUSIA [None]
  - HYPERHIDROSIS [None]
